FAERS Safety Report 12833326 (Version 1)
Quarter: 2016Q4

REPORT INFORMATION
  Report Type: Spontaneous
  Country: US (occurrence: US)
  Receive Date: 20161010
  Receipt Date: 20161010
  Transmission Date: 20170207
  Serious: No
  Sender: FDA-Public Use
  Company Number: US-AMNEAL PHARMACEUTICALS-2016AMN00426

PATIENT
  Age: 74 Year
  Sex: Female
  Weight: 61.22 kg

DRUGS (3)
  1. DICLOFENAC SODIUM. [Suspect]
     Active Substance: DICLOFENAC SODIUM
     Indication: ARTHRITIS
     Dosage: UNK UNK, 1X/DAY (SPARELY ONCE DAILY)
     Route: 061
     Dates: start: 20160720, end: 20160727
  2. LIPITOR [Concomitant]
     Active Substance: ATORVASTATIN CALCIUM
  3. WATER PILLS [Concomitant]
     Active Substance: UNSPECIFIED INGREDIENT

REACTIONS (3)
  - Application site joint erythema [Not Recovered/Not Resolved]
  - Dry skin [Not Recovered/Not Resolved]
  - Sunburn [Not Recovered/Not Resolved]

NARRATIVE: CASE EVENT DATE: 20160727
